FAERS Safety Report 5608648-3 (Version None)
Quarter: 2008Q1

REPORT INFORMATION
  Report Type: 
  Country: None (occurrence: None)
  Receive Date: 20080130
  Receipt Date: 20080118
  Transmission Date: 20080703
  Serious: Yes (Other)
  Sender: FDA-Public Use
  Company Number: US-PFIZER INC-2008006123

PATIENT
  Sex: Female

DRUGS (2)
  1. ZOLOFT [Suspect]
     Indication: DEPRESSION
     Dosage: TEXT:HALF A TABLET
  2. DILANTIN [Suspect]

REACTIONS (3)
  - DEPRESSION [None]
  - DISSOCIATIVE DISORDER [None]
  - FEELING ABNORMAL [None]
